FAERS Safety Report 6173947-6 (Version None)
Quarter: 2009Q2

REPORT INFORMATION
  Report Type: 
  Country: None (occurrence: None)
  Receive Date: 20090430
  Receipt Date: 20090422
  Transmission Date: 20091009
  Serious: Yes (Life-Threatening, Other)
  Sender: FDA-Public Use
  Company Number: CL-PFIZER INC-2009203701

PATIENT

DRUGS (3)
  1. CELECOXIB [Suspect]
     Indication: ARTHRITIS
     Route: 048
  2. ANTIHYPERTENSIVES [Concomitant]
     Dosage: UNK
  3. ALPRAZOLAM [Concomitant]
     Dosage: UNK

REACTIONS (5)
  - ANAPHYLACTIC SHOCK [None]
  - DYSPNOEA [None]
  - HAEMATOMA [None]
  - HYPERSENSITIVITY [None]
  - PRURITUS [None]
